FAERS Safety Report 4326673-X (Version None)
Quarter: 2004Q1

REPORT INFORMATION
  Report Type: 
  Country: None (occurrence: None)
  Receive Date: 20040329
  Receipt Date: 20040329
  Transmission Date: 20041129
  Serious: Yes (Death)
  Sender: FDA-Public Use
  Company Number: None

PATIENT
  Age: 16 Year
  Sex: Female
  Weight: 55.7924 kg

DRUGS (1)
  1. PROZAC [Suspect]
     Dosage: 60 MG DAY ORAL
     Route: 048

REACTIONS (1)
  - COMPLETED SUICIDE [None]
